FAERS Safety Report 9988746 (Version 2)
Quarter: 2014Q2

REPORT INFORMATION
  Report Type: Spontaneous
  Country: FR (occurrence: FR)
  Receive Date: 20140310
  Receipt Date: 20140402
  Transmission Date: 20141212
  Serious: Yes (Hospitalization)
  Sender: FDA-Public Use
  Company Number: FR-ROCHE-1359537

PATIENT
  Age: 61 Year
  Sex: Male
  Weight: 96 kg

DRUGS (2)
  1. CELLCEPT [Suspect]
     Indication: LUNG TRANSPLANT
     Route: 065
     Dates: start: 20131201, end: 20131204
  2. IMUREL [Concomitant]
     Indication: LUNG TRANSPLANT
     Route: 065
     Dates: start: 20131204

REACTIONS (1)
  - Agranulocytosis [Recovered/Resolved]
